FAERS Safety Report 21696062 (Version 1)
Quarter: 2022Q4

REPORT INFORMATION
  Report Type: Spontaneous
  Country: US (occurrence: None)
  Receive Date: 20221207
  Receipt Date: 20221207
  Transmission Date: 20230113
  Serious: Yes (Hospitalization, Disabling)
  Sender: FDA-Public Use
  Company Number: None

PATIENT
  Age: 45 Year
  Sex: Female
  Weight: 42.75 kg

DRUGS (1)
  1. KEYTRUDA [Suspect]
     Active Substance: PEMBROLIZUMAB
     Indication: Breast cancer
     Dosage: OTHER FREQUENCY : Q21 DAYS;?
     Route: 041
     Dates: start: 20220421, end: 20220825

REACTIONS (4)
  - Liver function test increased [None]
  - Hepatitis [None]
  - Rectal haemorrhage [None]
  - Immune-mediated hepatic disorder [None]

NARRATIVE: CASE EVENT DATE: 20220922
